FAERS Safety Report 12661690 (Version 16)
Quarter: 2017Q3

REPORT INFORMATION
  Report Type: Spontaneous
  Country: US (occurrence: US)
  Receive Date: 20160817
  Receipt Date: 20170915
  Transmission Date: 20171127
  Serious: Yes (Other)
  Sender: FDA-Public Use
  Company Number: US-PFIZER INC-2016389104

PATIENT
  Age: 76 Year
  Sex: Male
  Weight: 64 kg

DRUGS (15)
  1. SUTENT [Suspect]
     Active Substance: SUNITINIB MALATE
     Indication: RENAL CELL CARCINOMA
     Dosage: 50 MG, CYCLIC, 28 DAYS ON/14 DAYS OFF
     Dates: start: 20160808, end: 20160830
  2. HYDROCODONE BITARTRATE AND ACETAMINOPHEN [Concomitant]
     Active Substance: ACETAMINOPHEN\HYDROCODONE BITARTRATE
     Dosage: UNK
     Dates: start: 201311
  3. PLAVIX [Concomitant]
     Active Substance: CLOPIDOGREL BISULFATE
     Dosage: UNK
     Dates: start: 200808
  4. COREG [Concomitant]
     Active Substance: CARVEDILOL
     Dosage: UNK
  5. CARVEDIOL [Concomitant]
     Active Substance: CARVEDILOL
  6. MOUTH WASH [Concomitant]
     Dosage: UNK
  7. SUTENT [Suspect]
     Active Substance: SUNITINIB MALATE
     Dosage: 37.5 MG, CYCLIC (2 WEEKS ON/1 WEEK OFF)
     Dates: start: 20161204
  8. CRESTOR [Concomitant]
     Active Substance: ROSUVASTATIN CALCIUM
     Dosage: UNK
     Dates: end: 20151201
  9. IMODIUM [Concomitant]
     Active Substance: LOPERAMIDE HYDROCHLORIDE
     Dosage: UNK, AS NEEDED
  10. LEVOTHYROXINE. [Concomitant]
     Active Substance: LEVOTHYROXINE
     Indication: THYROID HORMONES DECREASED
     Dosage: UNK
  11. SUTENT [Suspect]
     Active Substance: SUNITINIB MALATE
     Dosage: 50 MG, CYCLIC (2 WEEKS ON/1 WEEK OFF)
  12. TRAMADOL. [Concomitant]
     Active Substance: TRAMADOL
     Dosage: UNK
     Dates: start: 201311
  13. SUTENT [Suspect]
     Active Substance: SUNITINIB MALATE
     Dosage: 50 MG, CYCLIC (28 DAYS ON/14 DAYS OFF)
     Dates: start: 20160915
  14. SUTENT [Suspect]
     Active Substance: SUNITINIB MALATE
     Dosage: 50 MG, CYCLIC (3 WEEKS ON / 2 WEEKS OFF)
     Dates: start: 20161023, end: 20161112
  15. LIPITOR [Concomitant]
     Active Substance: ATORVASTATIN CALCIUM
     Dosage: UNK
     Dates: start: 20151201

REACTIONS (25)
  - Dry skin [Not Recovered/Not Resolved]
  - Blood blister [Unknown]
  - Diarrhoea [Recovering/Resolving]
  - Lethargy [Recovering/Resolving]
  - Weight decreased [Recovering/Resolving]
  - Balance disorder [Recovering/Resolving]
  - Joint swelling [Recovered/Resolved]
  - Fatigue [Not Recovered/Not Resolved]
  - Headache [Recovering/Resolving]
  - Asthenia [Recovering/Resolving]
  - Peripheral swelling [Recovered/Resolved]
  - Hypersomnia [Not Recovered/Not Resolved]
  - Cardiac disorder [Recovering/Resolving]
  - Poor quality sleep [Recovering/Resolving]
  - Malaise [Recovering/Resolving]
  - Dizziness [Recovering/Resolving]
  - Platelet count decreased [Recovering/Resolving]
  - Thyroid hormones decreased [Unknown]
  - Decreased activity [Unknown]
  - Rash macular [Not Recovered/Not Resolved]
  - Hypoacusis [Recovering/Resolving]
  - Pulmonary mass [Not Recovered/Not Resolved]
  - Decreased appetite [Recovered/Resolved]
  - Musculoskeletal pain [Recovering/Resolving]
  - Stomatitis [Recovering/Resolving]

NARRATIVE: CASE EVENT DATE: 20160815
